FAERS Safety Report 8508416-9 (Version None)
Quarter: 2012Q3

REPORT INFORMATION
  Report Type: 
  Country: None (occurrence: None)
  Receive Date: 20120713
  Receipt Date: 20120711
  Transmission Date: 20120928
  Serious: Yes (Hospitalization, Disabling)
  Sender: FDA-Public Use
  Company Number: PHHO2012DE005895

PATIENT
  Sex: Female
  Weight: 93 kg

DRUGS (18)
  1. ALISKIREN [Suspect]
     Indication: CARDIAC FAILURE
     Dosage: LEVEL 1
     Route: 048
     Dates: start: 20100429
  2. FLUTICASONE PROPIONATE/SALMETEROL [Concomitant]
     Indication: CHRONIC OBSTRUCTIVE PULMONARY DISEASE
     Dosage: UNK
     Dates: start: 20100301
  3. ALISKIREN [Suspect]
     Dosage: LEVEL 2
     Route: 048
     Dates: start: 20100511
  4. ENALAPRIL MALEATE [Suspect]
     Dosage: LEVEL 1
     Route: 048
     Dates: start: 20110914
  5. METOCLOPRAMIDE [Concomitant]
     Indication: GASTROENTERITIS
     Dosage: UNK
     Dates: start: 20101129
  6. ENALAPRIL MALEATE [Suspect]
     Dosage: LEVEL 2
     Route: 048
     Dates: start: 20111020
  7. LYRICA [Concomitant]
     Indication: CARDIAC FAILURE CONGESTIVE
     Dosage: 1 TBI
     Dates: start: 20050101
  8. DIPYRONE TAB [Concomitant]
     Indication: POLYNEUROPATHY
     Dosage: UNK
     Dates: start: 20100301
  9. ALISKIREN [Suspect]
     Dosage: LEVEL 1
     Route: 048
     Dates: start: 20110929
  10. PANTOPRAZOLE [Concomitant]
     Indication: PROPHYLAXIS
     Dosage: UNK
     Dates: start: 20100824
  11. POLYHEXANIDE [Concomitant]
     Indication: PROPHYLAXIS
     Dosage: UNK
     Dates: start: 20110527
  12. SPIRIVA [Concomitant]
     Indication: CHRONIC OBSTRUCTIVE PULMONARY DISEASE
     Dosage: 18 UG, UNK
     Dates: start: 20100301
  13. ALISKIREN [Suspect]
     Dosage: NO TREATMENT
     Dates: start: 20110824
  14. ALISKIREN [Suspect]
     Dosage: LEVEL 2
     Route: 048
     Dates: start: 20111020
  15. ENALAPRIL MALEATE [Suspect]
     Indication: CARDIAC FAILURE
     Dosage: LEVEL 1
     Route: 048
     Dates: start: 20100429
  16. ENALAPRIL MALEATE [Suspect]
     Dosage: LEVEL 2
     Route: 048
     Dates: start: 20100511
  17. ENALAPRIL MALEATE [Suspect]
     Dosage: NO TREATMENT
     Dates: start: 20110824
  18. METHIMAZOLE [Concomitant]
     Indication: CORNEAL PIGMENTATION
     Dosage: 20 MG, UNK
     Dates: start: 20110629

REACTIONS (3)
  - MYELOPATHY [None]
  - HEMIPARESIS [None]
  - SPINAL COLUMN STENOSIS [None]
